FAERS Safety Report 19046312 (Version 3)
Quarter: 2021Q4

REPORT INFORMATION
  Report Type: Spontaneous
  Country: US (occurrence: US)
  Receive Date: 20210323
  Receipt Date: 20211110
  Transmission Date: 20220303
  Serious: Yes (Hospitalization)
  Sender: FDA-Public Use
  Company Number: US-ELI_LILLY_AND_COMPANY-US202103006271

PATIENT
  Sex: Male

DRUGS (2)
  1. TRULICITY [Suspect]
     Active Substance: DULAGLUTIDE
     Indication: Type 2 diabetes mellitus
     Dosage: 1.5 MG, UNKNOWN
     Route: 058
     Dates: start: 2020
  2. TRULICITY [Suspect]
     Active Substance: DULAGLUTIDE
     Dosage: 1.5 MG, UNKNOWN
     Route: 058

REACTIONS (8)
  - Post procedural cellulitis [Not Recovered/Not Resolved]
  - Nerve injury [Unknown]
  - Muscle disorder [Unknown]
  - Post-traumatic stress disorder [Recovering/Resolving]
  - Gait disturbance [Unknown]
  - Blood glucose increased [Unknown]
  - Scab [Unknown]
  - Procedural pain [Unknown]
